FAERS Safety Report 21321737 (Version 1)
Quarter: 2022Q3

REPORT INFORMATION
  Report Type: Spontaneous
  Country: US (occurrence: None)
  Receive Date: 20220909
  Receipt Date: 20220909
  Transmission Date: 20221026
  Serious: Yes (Hospitalization)
  Sender: FDA-Public Use
  Company Number: None

PATIENT
  Age: 67 Year
  Sex: Female

DRUGS (4)
  1. COSENTYX [Suspect]
     Active Substance: SECUKINUMAB
     Indication: Psoriasis
     Dosage: FREQUENCY : MONTHLY;?INJECT 2 PENS (300 MG) UNDER THE SKIN (SUBCUTANEOUS INJECTION) EVERY 4 WEEKS.?
     Route: 058
     Dates: start: 20150923
  2. COSENTYX [Suspect]
     Active Substance: SECUKINUMAB
     Dosage: OTHER QUANTITY : 2 PENS (300MG);?FREQUENCY : MONTHLY;?
     Route: 058
  3. OMEGA 3 [Concomitant]
     Active Substance: CAPSAICIN
  4. PROZAC [Concomitant]
     Active Substance: FLUOXETINE HYDROCHLORIDE

REACTIONS (2)
  - Pneumonia [None]
  - Staphylococcal infection [None]

NARRATIVE: CASE EVENT DATE: 20220817
